FAERS Safety Report 9954787 (Version 2)
Quarter: 2014Q1

REPORT INFORMATION
  Report Type: Report from Study
  Country: US (occurrence: US)
  Receive Date: 20140304
  Receipt Date: 20140304
  Transmission Date: 20141002
  Serious: No
  Sender: FDA-Public Use
  Company Number: US-ABBVIE-13P-163-1062816-00

PATIENT
  Age: 84 Year
  Sex: Female

DRUGS (6)
  1. HUMIRA [Suspect]
     Indication: PSORIATIC ARTHROPATHY
     Dosage: LOADING DOSE
     Dates: start: 20130218
  2. IRON [Concomitant]
     Indication: ANAEMIA
     Dosage: DAILY
  3. FELODIPINE [Concomitant]
     Indication: BLOOD PRESSURE
     Dosage: 2.5 MG
  4. LEVOTHYROXINE [Concomitant]
     Indication: HYPOTHYROIDISM
  5. NABUMATONE [Concomitant]
     Indication: ARTHRITIS
  6. METHOTREXATE [Concomitant]

REACTIONS (8)
  - Incorrect dose administered [Unknown]
  - Fatigue [Unknown]
  - Device malfunction [Unknown]
  - Wrong technique in drug usage process [Not Recovered/Not Resolved]
  - Oropharyngeal pain [Not Recovered/Not Resolved]
  - Injection site induration [Not Recovered/Not Resolved]
  - Injection site pain [Not Recovered/Not Resolved]
  - Injection site pain [Not Recovered/Not Resolved]
